FAERS Safety Report 6311435-4 (Version None)
Quarter: 2009Q3

REPORT INFORMATION
  Report Type: 
  Country: None (occurrence: None)
  Receive Date: 20090817
  Receipt Date: 20090805
  Transmission Date: 20100115
  Serious: Yes (Death)
  Sender: FDA-Public Use
  Company Number: JP-PFIZER INC-2009251776

PATIENT
  Age: 62 Year

DRUGS (1)
  1. SUNITINIB MALATE [Suspect]
     Indication: RENAL CELL CARCINOMA
     Dosage: TDD 50 MG
     Route: 048
     Dates: start: 20090529, end: 20090717

REACTIONS (1)
  - HAEMOPTYSIS [None]
